FAERS Safety Report 13911393 (Version 3)
Quarter: 2017Q4

REPORT INFORMATION
  Report Type: Spontaneous
  Country: US (occurrence: US)
  Receive Date: 20170828
  Receipt Date: 20171027
  Transmission Date: 20180320
  Serious: No
  Sender: FDA-Public Use
  Company Number: US-GLAXOSMITHKLINE-US2017GSK131938

PATIENT
  Sex: Male
  Weight: 113.38 kg

DRUGS (2)
  1. BREO ELLIPTA [Suspect]
     Active Substance: FLUTICASONE FUROATE\VILANTEROL TRIFENATATE
     Indication: ASTHMA
     Dosage: UNK
     Route: 055
     Dates: start: 201701
  2. INCRUSE ELLIPTA [Suspect]
     Active Substance: UMECLIDINIUM BROMIDE
     Indication: PRODUCT USED FOR UNKNOWN INDICATION
     Dosage: UNK, U

REACTIONS (6)
  - Dysuria [Recovering/Resolving]
  - Lung disorder [Unknown]
  - Urinary incontinence [Recovering/Resolving]
  - Micturition disorder [Recovering/Resolving]
  - Malaise [Unknown]
  - Renal neoplasm [Unknown]
